FAERS Safety Report 4909515-0 (Version None)
Quarter: 2006Q1

REPORT INFORMATION
  Report Type: 
  Country: None (occurrence: None)
  Receive Date: 20060208
  Receipt Date: 20060208
  Transmission Date: 20060701
  Serious: Yes (Hospitalization)
  Sender: FDA-Public Use
  Company Number: None

PATIENT
  Sex: Male
  Weight: 75.2971 kg

DRUGS (19)
  1. CARVEDILOL [Suspect]
     Indication: ATRIAL FIBRILLATION
     Dosage: 3.125 MG BID
     Dates: start: 20050831, end: 20051102
  2. CARVEDILOL [Suspect]
     Indication: CARDIAC FAILURE CONGESTIVE
     Dosage: 3.125 MG BID
     Dates: start: 20050831, end: 20051102
  3. ENALAPRIL [Suspect]
     Indication: CARDIAC FAILURE CONGESTIVE
     Dosage: 2.5 MG BID
     Dates: start: 20050831, end: 20051102
  4. ENALAPRIL [Suspect]
     Indication: HYPERTENSION
     Dosage: 2.5 MG BID
     Dates: start: 20050831, end: 20051102
  5. FUROSEMIDE [Suspect]
     Dosage: 20 MG DAILY
  6. ACETAMINOPHEN [Concomitant]
  7. CALCIUM CARBONATE/MAGNESIUM HYDROXIDE [Concomitant]
  8. DOCUSATE CALCIUM [Concomitant]
  9. LOVASTATIN [Concomitant]
  10. MILK OF MAGNESIA TAB [Concomitant]
  11. MORPHINE SULFATE [Concomitant]
  12. MULTI-VITAMIN [Concomitant]
  13. NITROGLYCERIN [Concomitant]
  14. NYSTATIN [Concomitant]
  15. PROCHLORPERAZINE MALEATE [Concomitant]
  16. RANITIDINE HCL [Concomitant]
  17. SODIUM CHLORIDE [Concomitant]
  18. TEMAZEPAM [Concomitant]
  19. COUMADIN [Concomitant]

REACTIONS (2)
  - BRADYCARDIA [None]
  - DIZZINESS [None]
